FAERS Safety Report 9334557 (Version 1)
Quarter: 2013Q2

REPORT INFORMATION
  Report Type: Spontaneous
  Country: US (occurrence: US)
  Receive Date: 20130606
  Receipt Date: 20130606
  Transmission Date: 20140414
  Serious: No
  Sender: FDA-Public Use
  Company Number: US-AMGEN-USASP2013025623

PATIENT
  Age: 65 Year
  Sex: Female

DRUGS (7)
  1. PROLIA [Suspect]
     Indication: OSTEOPOROSIS POSTMENOPAUSAL
     Dosage: UNK
     Dates: start: 201205
  2. CHONDROITIN SULFATE W/GLUCOSAMINE [Concomitant]
  3. CALCIUM [Concomitant]
  4. VITAMIN D                          /00107901/ [Concomitant]
  5. VITAMIN K                          /00032401/ [Concomitant]
  6. BUFFERED ASPIRIN [Concomitant]
  7. SENOKOT                            /00142201/ [Concomitant]

REACTIONS (7)
  - Gait disturbance [Recovering/Resolving]
  - Dry skin [Recovering/Resolving]
  - Skin wrinkling [Recovering/Resolving]
  - Dysuria [Recovered/Resolved]
  - Weight increased [Not Recovered/Not Resolved]
  - Arthritis [Recovering/Resolving]
  - Constipation [Recovering/Resolving]
